FAERS Safety Report 13401886 (Version 1)
Quarter: 2017Q2

REPORT INFORMATION
  Report Type: Spontaneous
  Country: US (occurrence: US)
  Receive Date: 20170404
  Receipt Date: 20170404
  Transmission Date: 20170830
  Serious: No
  Sender: FDA-Public Use
  Company Number: US-ELI_LILLY_AND_COMPANY-US201607010077

PATIENT
  Age: 51 Year
  Sex: Female

DRUGS (1)
  1. CYMBALTA [Suspect]
     Active Substance: DULOXETINE HYDROCHLORIDE
     Indication: PRODUCT USED FOR UNKNOWN INDICATION
     Dosage: 60 MG, UNKNOWN
     Route: 065
     Dates: start: 20120827, end: 20140709

REACTIONS (17)
  - Influenza like illness [Unknown]
  - Headache [Unknown]
  - Abdominal discomfort [Unknown]
  - Fatigue [Unknown]
  - Irritability [Unknown]
  - Tinnitus [Unknown]
  - Affect lability [Unknown]
  - Muscle spasms [Unknown]
  - Hot flush [Unknown]
  - Drug withdrawal syndrome [Unknown]
  - Dizziness [Unknown]
  - Confusional state [Unknown]
  - Paraesthesia [Unknown]
  - Intentional product misuse [Unknown]
  - Dysphoria [Unknown]
  - Agitation [Unknown]
  - Nausea [Unknown]

NARRATIVE: CASE EVENT DATE: 201407
